FAERS Safety Report 8369870-9 (Version None)
Quarter: 2012Q2

REPORT INFORMATION
  Report Type: 
  Country: None (occurrence: None)
  Receive Date: 20120518
  Receipt Date: 20120516
  Transmission Date: 20120825
  Serious: Yes (Death)
  Sender: FDA-Public Use
  Company Number: CN-PFIZER INC-2012119589

PATIENT

DRUGS (2)
  1. ZYVOX [Suspect]
     Indication: SALVAGE THERAPY
  2. IMIPENEM AND CILASTATIN SODIUM [Concomitant]
     Indication: SALVAGE THERAPY

REACTIONS (1)
  - DEATH [None]
